FAERS Safety Report 17282306 (Version 1)
Quarter: 2020Q1

REPORT INFORMATION
  Report Type: Spontaneous
  Country: US (occurrence: US)
  Receive Date: 20200116
  Receipt Date: 20200116
  Transmission Date: 20200409
  Serious: No
  Sender: FDA-Public Use
  Company Number: None

PATIENT
  Age: 14 Year
  Sex: Male
  Weight: 56.25 kg

DRUGS (1)
  1. METHYLPHENIDATE 54 MG ER TABLET [Suspect]
     Active Substance: METHYLPHENIDATE
     Indication: ATTENTION DEFICIT/HYPERACTIVITY DISORDER
     Dosage: ?          QUANTITY:1 TABLET(S);?
     Route: 048
     Dates: start: 20200104, end: 20200114

REACTIONS (2)
  - Skin discolouration [None]
  - Abdominal pain upper [None]

NARRATIVE: CASE EVENT DATE: 20200113
